FAERS Safety Report 17372529 (Version 2)
Quarter: 2020Q1

REPORT INFORMATION
  Report Type: Report from Study
  Country: None (occurrence: NZ)
  Receive Date: 20200205
  Receipt Date: 20200223
  Transmission Date: 20200409
  Serious: Yes (Other)
  Sender: FDA-Public Use
  Company Number: NZ-ABBVIE-20K-118-3257198-00

PATIENT
  Age: 65 Year
  Sex: Female

DRUGS (4)
  1. HUMIRA [Suspect]
     Active Substance: ADALIMUMAB
     Dosage: LOADING DOSE FOUR INJECTION
     Route: 058
     Dates: start: 20200121, end: 20200121
  2. HUMIRA [Suspect]
     Active Substance: ADALIMUMAB
     Route: 058
  3. HUMIRA [Suspect]
     Active Substance: ADALIMUMAB
     Indication: CROHN^S DISEASE
     Route: 058
     Dates: start: 20160921
  4. HUMIRA [Suspect]
     Active Substance: ADALIMUMAB
     Dosage: LOADING DOSE TWO INJECTION
     Route: 058
     Dates: start: 20200122, end: 20200122

REACTIONS (7)
  - Feeling abnormal [Unknown]
  - Fatigue [Unknown]
  - Therapeutic product effect decreased [Unknown]
  - Gastrointestinal obstruction [Unknown]
  - Incorrect dose administered [Unknown]
  - Tremor [Unknown]
  - Headache [Unknown]

NARRATIVE: CASE EVENT DATE: 20200122
